FAERS Safety Report 20840930 (Version 3)
Quarter: 2022Q3

REPORT INFORMATION
  Report Type: Spontaneous
  Country: JP (occurrence: JP)
  Receive Date: 20220517
  Receipt Date: 20220720
  Transmission Date: 20221027
  Serious: Yes (Other)
  Sender: FDA-Public Use
  Company Number: JP-PFIZER INC-2019314078

PATIENT
  Sex: Male

DRUGS (1)
  1. EFFEXOR [Suspect]
     Active Substance: VENLAFAXINE HYDROCHLORIDE
     Indication: Depression
     Dosage: 3 DF
     Route: 048
     Dates: end: 20210903

REACTIONS (11)
  - Vascular insufficiency [Unknown]
  - Musculoskeletal stiffness [Unknown]
  - Illness [Unknown]
  - Therapeutic response decreased [Unknown]
  - Photophobia [Unknown]
  - Withdrawal syndrome [Unknown]
  - Hyperhidrosis [Unknown]
  - Abdominal distension [Unknown]
  - Constipation [Unknown]
  - Decreased appetite [Unknown]
  - Anaemia [Unknown]
